FAERS Safety Report 15898838 (Version 1)
Quarter: 2019Q1

REPORT INFORMATION
  Report Type: Spontaneous
  Country: CN (occurrence: CN)
  Receive Date: 20190201
  Receipt Date: 20190201
  Transmission Date: 20190417
  Serious: Yes (Other)
  Sender: FDA-Public Use
  Company Number: CN-ROCHE-2246793

PATIENT
  Age: 56 Year
  Sex: Male

DRUGS (10)
  1. LINEZOLID. [Concomitant]
     Active Substance: LINEZOLID
  2. CELLCEPT [Suspect]
     Active Substance: MYCOPHENOLATE MOFETIL\MYCOPHENOLATE MOFETIL HYDROCHLORIDE
     Indication: RENAL TRANSPLANT
     Dosage: 0.5-0.75
     Route: 065
  3. SULPERAZONE [Concomitant]
     Active Substance: CEFOPERAZONE SODIUM\SULBACTAM SODIUM
     Indication: URINARY TRACT INFECTION
  4. MICAFUNGIN. [Concomitant]
     Active Substance: MICAFUNGIN SODIUM
     Indication: INFECTION PROPHYLAXIS
  5. MIZORIBINE [Concomitant]
     Active Substance: MIZORIBINE
     Indication: RENAL TRANSPLANT
     Dosage: EACH DAY
     Route: 065
  6. MEROPENEM. [Concomitant]
     Active Substance: MEROPENEM
  7. IVIG [Concomitant]
     Active Substance: HUMAN IMMUNOGLOBULIN G
     Route: 065
  8. PROGRAF [Concomitant]
     Active Substance: TACROLIMUS\TACROLIMUS ANHYDROUS
     Indication: RENAL TRANSPLANT
  9. LEVOFLOXACIN. [Concomitant]
     Active Substance: LEVOFLOXACIN
     Indication: URINARY TRACT INFECTION
  10. IVIG [Concomitant]
     Active Substance: HUMAN IMMUNOGLOBULIN G
     Route: 065

REACTIONS (15)
  - Pyrexia [Unknown]
  - Asthenia [Unknown]
  - Anaemia [Unknown]
  - General physical health deterioration [Unknown]
  - Escherichia urinary tract infection [Unknown]
  - Transplant rejection [Unknown]
  - Urinary tract infection [Recovered/Resolved]
  - Ureteral necrosis [Unknown]
  - Decreased appetite [Unknown]
  - Leukocyturia [Unknown]
  - Urinary tract infection enterococcal [Unknown]
  - Bacteraemia [Unknown]
  - White blood cells urine positive [Unknown]
  - Urinary fistula [Unknown]
  - C-reactive protein increased [Unknown]

NARRATIVE: CASE EVENT DATE: 2016
